FAERS Safety Report 4852485-4 (Version None)
Quarter: 2005Q4

REPORT INFORMATION
  Report Type: 
  Country: None (occurrence: None)
  Receive Date: 20051130
  Receipt Date: 20050808
  Transmission Date: 20060501
  Serious: No
  Sender: FDA-Public Use
  Company Number: WAES 0302USA01100

PATIENT
  Sex: Male

DRUGS (5)
  1. ZETIA [Suspect]
     Indication: BLOOD CHOLESTEROL INCREASED
     Dosage: 10 MG/DAILY/PO
     Route: 048
     Dates: start: 20030208, end: 20050701
  2. ALTACE [Concomitant]
  3. NAMENDA [Concomitant]
  4. PLAVIX [Concomitant]
  5. PROCARDIA [Concomitant]

REACTIONS (7)
  - ARTHRALGIA [None]
  - FREQUENT BOWEL MOVEMENTS [None]
  - MONARTHRITIS [None]
  - MUSCLE SPASMS [None]
  - MYALGIA [None]
  - PAIN IN EXTREMITY [None]
  - SINUSITIS [None]
